FAERS Safety Report 6032738-7 (Version None)
Quarter: 2009Q1

REPORT INFORMATION
  Report Type: 
  Country: None (occurrence: None)
  Receive Date: 20090109
  Receipt Date: 20081226
  Transmission Date: 20090719
  Serious: Yes (Other)
  Sender: FDA-Public Use
  Company Number: PHHY2008ZA33362

PATIENT
  Age: 64 Year
  Sex: Female

DRUGS (2)
  1. ACLASTA [Suspect]
     Indication: OSTEOPOROSIS
  2. VOLTAREN [Suspect]
     Indication: BONE PAIN
     Dosage: UNK
     Dates: start: 20081222

REACTIONS (5)
  - BONE PAIN [None]
  - PALATAL DISORDER [None]
  - PHARYNGEAL OEDEMA [None]
  - SELF-MEDICATION [None]
  - STOMATITIS [None]
